FAERS Safety Report 18265766 (Version 1)
Quarter: 2020Q3

REPORT INFORMATION
  Report Type: Spontaneous
  Country: ZA (occurrence: ZA)
  Receive Date: 20200914
  Receipt Date: 20200914
  Transmission Date: 20201103
  Serious: Yes (Death)
  Sender: FDA-Public Use
  Company Number: ZA-ROCHE-2674479

PATIENT
  Age: 47 Year
  Sex: Female

DRUGS (2)
  1. DEXAMETASONE [Concomitant]
     Active Substance: DEXAMETHASONE
     Dates: start: 20200726, end: 20200728
  2. ACTEMRA [Suspect]
     Active Substance: TOCILIZUMAB
     Indication: COVID-19
     Dosage: FREQUENCY: STAT
     Route: 042
     Dates: start: 20200728, end: 20200728

REACTIONS (3)
  - Death [Fatal]
  - Intentional product use issue [Unknown]
  - Off label use [Unknown]

NARRATIVE: CASE EVENT DATE: 20200729
